FAERS Safety Report 8340736-3 (Version None)
Quarter: 2012Q2

REPORT INFORMATION
  Report Type: 
  Country: None (occurrence: None)
  Receive Date: 20120507
  Receipt Date: 20120426
  Transmission Date: 20120825
  Serious: Yes (Other)
  Sender: FDA-Public Use
  Company Number: US-BIOGENIDEC-2011BI036520

PATIENT
  Age: 57 Year
  Sex: Female

DRUGS (7)
  1. SYNTHROID [Concomitant]
     Indication: HYPOTHYROIDISM
  2. LYRICA [Concomitant]
     Indication: PAIN
     Dates: start: 20100101
  3. AVONEX [Suspect]
     Route: 030
     Dates: start: 20110501
  4. PREMARIN [Concomitant]
     Indication: HORMONE REPLACEMENT THERAPY
     Dates: start: 19810101, end: 20110801
  5. FENTANYL CITRATE [Concomitant]
     Indication: PAIN
     Dates: end: 20110601
  6. AVONEX [Suspect]
     Indication: MULTIPLE SCLEROSIS
     Route: 030
     Dates: start: 20030606, end: 20030101
  7. LISINOPRIL [Concomitant]
     Indication: HYPERTENSION

REACTIONS (15)
  - URINARY INCONTINENCE [None]
  - INFLUENZA LIKE ILLNESS [None]
  - INTERNATIONAL NORMALISED RATIO FLUCTUATION [None]
  - LACERATION [None]
  - PULMONARY EMBOLISM [None]
  - ASTHENIA [None]
  - PAIN IN EXTREMITY [None]
  - FALL [None]
  - INTERNATIONAL NORMALISED RATIO INCREASED [None]
  - EXCORIATION [None]
  - DIZZINESS [None]
  - SOMNOLENCE [None]
  - CONTUSION [None]
  - HEADACHE [None]
  - DEEP VEIN THROMBOSIS [None]
